FAERS Safety Report 19006860 (Version 1)
Quarter: 2021Q1

REPORT INFORMATION
  Report Type: Spontaneous
  Country: US (occurrence: US)
  Receive Date: 20210312
  Receipt Date: 20210312
  Transmission Date: 20210420
  Serious: Yes (Other)
  Sender: FDA-Public Use
  Company Number: None

PATIENT
  Age: 79 Year
  Sex: Male

DRUGS (1)
  1. POMALYST [Suspect]
     Active Substance: POMALIDOMIDE
     Indication: PLASMA CELL MYELOMA
     Route: 048
     Dates: start: 20210125

REACTIONS (4)
  - Pain in extremity [None]
  - Peripheral swelling [None]
  - Deep vein thrombosis [None]
  - Condition aggravated [None]

NARRATIVE: CASE EVENT DATE: 20210310
